FAERS Safety Report 8565933 (Version 2)
Quarter: 2013Q4

REPORT INFORMATION
  Report Type: Spontaneous
  Country: GB (occurrence: GB)
  Receive Date: 20120516
  Receipt Date: 20131002
  Transmission Date: 20140711
  Serious: Yes (Death, Life-Threatening, Hospitalization, Other)
  Sender: FDA-Public Use
  Company Number: PHHY2012GB040816

PATIENT
  Age: 70 Year
  Sex: Female
  Weight: 80 kg

DRUGS (7)
  1. CIPROFLOXACIN [Suspect]
     Indication: INFECTION
     Dosage: 1 DF, BID
     Route: 048
     Dates: start: 20110329, end: 20120405
  2. METHOTREXATE [Suspect]
     Indication: PSORIATIC ARTHROPATHY
     Dosage: 20 MG, QW
     Route: 048
     Dates: end: 20120407
  3. TAZOCIN [Suspect]
     Indication: INFECTION
     Dosage: 4.5 G, BID
     Route: 042
     Dates: start: 20120405
  4. ALLOPURINOL [Concomitant]
  5. GENTAMICIN [Concomitant]
     Indication: INFECTION
     Dosage: UNK UKN, UNK
     Dates: end: 20120329
  6. RIFAMPICIN [Concomitant]
     Indication: INFECTION
  7. TEICOPLANIN [Concomitant]
     Indication: INFECTION
     Dosage: UNK UKN, UNK
     Dates: end: 20120329

REACTIONS (19)
  - Stevens-Johnson syndrome [Fatal]
  - Rash erythematous [Fatal]
  - Inflammation [Fatal]
  - Pyrexia [Fatal]
  - Pain [Fatal]
  - Mucosal ulceration [Fatal]
  - Blister [Fatal]
  - Mucosal inflammation [Fatal]
  - Tachycardia [Fatal]
  - Liver function test abnormal [Fatal]
  - Renal failure acute [Unknown]
  - Pancytopenia [Not Recovered/Not Resolved]
  - Sepsis [Unknown]
  - Immunosuppressant drug level increased [Unknown]
  - Drug interaction [Not Recovered/Not Resolved]
  - C-reactive protein increased [Unknown]
  - White blood cell count decreased [Unknown]
  - Haemoglobin decreased [Unknown]
  - Platelet count decreased [Unknown]
